FAERS Safety Report 25222477 (Version 2)
Quarter: 2025Q3

REPORT INFORMATION
  Report Type: Report from Study
  Country: US (occurrence: US)
  Receive Date: 20250421
  Receipt Date: 20250728
  Transmission Date: 20251021
  Serious: Yes (Hospitalization)
  Sender: ABBVIE
  Company Number: US-ABBVIE-6232170

PATIENT
  Age: 56 Year
  Sex: Male

DRUGS (2)
  1. CREON [Suspect]
     Active Substance: PANCRELIPASE AMYLASE\PANCRELIPASE LIPASE\PANCRELIPASE PROTEASE
     Indication: Pancreatic failure
     Route: 048
     Dates: start: 20211120
  2. CREON [Suspect]
     Active Substance: PANCRELIPASE AMYLASE\PANCRELIPASE LIPASE\PANCRELIPASE PROTEASE
     Indication: Pancreatic failure
     Route: 048
     Dates: start: 20220416

REACTIONS (5)
  - Pancreatitis acute [Not Recovered/Not Resolved]
  - Pancreatitis relapsing [Recovered/Resolved]
  - Diabetes mellitus [Unknown]
  - Pain [Not Recovered/Not Resolved]
  - Pancreatic enzymes decreased [Unknown]

NARRATIVE: CASE EVENT DATE: 20240201
